FAERS Safety Report 16834636 (Version 2)
Quarter: 2019Q4

REPORT INFORMATION
  Report Type: Spontaneous
  Country: US (occurrence: US)
  Receive Date: 20190920
  Receipt Date: 20191108
  Transmission Date: 20200122
  Serious: No
  Sender: FDA-Public Use
  Company Number: US-GLAXOSMITHKLINE-US2019166922

PATIENT
  Age: 41 Year
  Sex: Female

DRUGS (2)
  1. NICODERM CQ [Suspect]
     Active Substance: NICOTINE
     Indication: SMOKING CESSATION THERAPY
     Dosage: 21 MG, SINGLE
     Route: 062
     Dates: start: 20190907, end: 20190908
  2. NICODERM CQ [Suspect]
     Active Substance: NICOTINE
     Indication: ELECTRONIC CIGARETTE USER
     Dosage: 21 MG, SINGLE
     Route: 062
     Dates: start: 20190907, end: 20190908

REACTIONS (4)
  - Application site erythema [Recovering/Resolving]
  - Application site swelling [Unknown]
  - Application site pruritus [Recovering/Resolving]
  - Application site reaction [Not Recovered/Not Resolved]

NARRATIVE: CASE EVENT DATE: 20190907
